FAERS Safety Report 11649526 (Version 1)
Quarter: 2015Q4

REPORT INFORMATION
  Report Type: Spontaneous
  Country: US (occurrence: US)
  Receive Date: 20151021
  Receipt Date: 20151021
  Transmission Date: 20160304
  Serious: No
  Sender: FDA-Public Use
  Company Number: US-BAYER-2015-444649

PATIENT
  Age: 37 Year
  Sex: Male
  Weight: 81.63 kg

DRUGS (1)
  1. MIRALAX [Suspect]
     Active Substance: POLYETHYLENE GLYCOL 3350
     Indication: CONSTIPATION
     Dosage: HALF CUP, BID
     Route: 048
     Dates: start: 20150601

REACTIONS (3)
  - Intentional product use issue [None]
  - Intentional product misuse [None]
  - Drug prescribing error [None]
